FAERS Safety Report 7068721-2 (Version None)
Quarter: 2010Q4

REPORT INFORMATION
  Report Type: 
  Country: None (occurrence: None)
  Receive Date: 20101020
  Receipt Date: 20101008
  Transmission Date: 20110411
  Serious: Yes (Hospitalization)
  Sender: FDA-Public Use
  Company Number: 1000016784

PATIENT
  Age: 76 Year
  Sex: Female

DRUGS (3)
  1. ESCITALOPRAM [Suspect]
     Dosage: 10 MG (10 MG,1 IN 1 D),ORAL
     Route: 048
     Dates: start: 20100904, end: 20100906
  2. VALDOXAN (AGOMELATINE) [Suspect]
     Dosage: ORAL
     Route: 048
     Dates: start: 20100906, end: 20100908
  3. LEXOMIL (BROMAZEPAM) [Suspect]
     Dosage: 1.25 DOSAGE FORM (1.25 DOSAGE FORMS,1 IN 1 D),ORAL
     Route: 048

REACTIONS (5)
  - ANXIETY [None]
  - CONFUSIONAL STATE [None]
  - FEELING DRUNK [None]
  - HYPOMANIA [None]
  - NAUSEA [None]
